FAERS Safety Report 4326529-2 (Version None)
Quarter: 2004Q1

REPORT INFORMATION
  Report Type: 
  Country: None (occurrence: None)
  Receive Date: 20040326
  Receipt Date: 20040326
  Transmission Date: 20041129
  Serious: Yes (Other)
  Sender: FDA-Public Use
  Company Number: None

PATIENT
  Age: 38 Year
  Sex: Female

DRUGS (1)
  1. TRI-SPRINTEC [Suspect]
     Dosage: 1 QD PO
     Route: 048

REACTIONS (4)
  - MENORRHAGIA [None]
  - MENSTRUAL DISORDER [None]
  - PHARMACEUTICAL PRODUCT COMPLAINT [None]
  - RASH [None]
